FAERS Safety Report 5430315-X (Version None)
Quarter: 2007Q3

REPORT INFORMATION
  Report Type: 
  Country: None (occurrence: None)
  Receive Date: 20070830
  Receipt Date: 20070821
  Transmission Date: 20080115
  Serious: Yes (Hospitalization)
  Sender: FDA-Public Use
  Company Number: PHEH2007US11524

PATIENT
  Age: 40 Year
  Sex: Male

DRUGS (2)
  1. LOPRESSOR [Concomitant]
     Route: 048
  2. TEKTURNA [Suspect]
     Indication: HYPERTENSION
     Dosage: 150 MG, QD
     Route: 048

REACTIONS (2)
  - INFLAMMATION [None]
  - PANCREATITIS [None]
